FAERS Safety Report 6240643-6 (Version None)
Quarter: 2009Q2

REPORT INFORMATION
  Report Type: 
  Country: None (occurrence: None)
  Receive Date: 20090623
  Receipt Date: 20090415
  Transmission Date: 20091009
  Serious: No
  Sender: FDA-Public Use
  Company Number: US-ASTRAZENECA-2008UW26275

PATIENT
  Age: 77 Year
  Sex: Male

DRUGS (16)
  1. PULMICORT FLEXHALER [Suspect]
     Indication: CHRONIC OBSTRUCTIVE PULMONARY DISEASE
     Dosage: 180MCG, 2 PUFFS TWICE DAILY
     Route: 055
     Dates: start: 20081107
  2. PULMICORT RESPULES [Suspect]
     Indication: CHRONIC OBSTRUCTIVE PULMONARY DISEASE
     Dosage: 0.5 MG/2 ML, TWICE DAILY
     Route: 055
     Dates: start: 20081220
  3. BROVANA [Concomitant]
  4. ALLOPURINOL [Concomitant]
  5. LISINOPRIL [Concomitant]
  6. WARFARIN SODIUM [Concomitant]
  7. ICAP VITAMIN [Concomitant]
  8. VITAMIN B COMPLEX CAP [Concomitant]
  9. FLOMAX [Concomitant]
  10. SULINDAC [Concomitant]
  11. FUROSEMIDE [Concomitant]
  12. POTASSIUM CHLORIDE [Concomitant]
  13. CALCIUM+D [Concomitant]
  14. VITAMIN D [Concomitant]
  15. HYDROCODONE BITARTRATE [Concomitant]
  16. DARVOCET [Concomitant]

REACTIONS (2)
  - DYSPHONIA [None]
  - RASH [None]
